FAERS Safety Report 17759407 (Version 1)
Quarter: 2020Q2

REPORT INFORMATION
  Report Type: Spontaneous
  Country: FR (occurrence: FR)
  Receive Date: 20200508
  Receipt Date: 20200508
  Transmission Date: 20200714
  Serious: Yes (Hospitalization, Other)
  Sender: FDA-Public Use
  Company Number: FR-AUROBINDO-AUR-APL-2020-022196

PATIENT
  Age: 43 Year
  Sex: Male

DRUGS (9)
  1. PARACETAMOL B BRAUN [Concomitant]
     Active Substance: ACETAMINOPHEN
     Indication: PRODUCT USED FOR UNKNOWN INDICATION
     Dosage: UNK
     Route: 042
  2. PYRIDOXINE [Concomitant]
     Active Substance: PYRIDOXINE
     Indication: PRODUCT USED FOR UNKNOWN INDICATION
     Dosage: UNK
     Route: 042
  3. RISPERIDONE. [Suspect]
     Active Substance: RISPERIDONE
     Indication: PSYCHOTIC DISORDER
     Dosage: 1 MILLIGRAM, ONCE A DAY
     Route: 048
     Dates: start: 20200318, end: 20200326
  4. CERNEVIT [Concomitant]
     Active Substance: VITAMINS
     Indication: PRODUCT USED FOR UNKNOWN INDICATION
     Dosage: UNK
     Route: 042
  5. BENERVA [Concomitant]
     Active Substance: THIAMINE HYDROCHLORIDE
     Indication: PRODUCT USED FOR UNKNOWN INDICATION
     Dosage: UNK
     Route: 042
  6. AMOXICILLIN SODIUM;CLAVULANIC ACID [Concomitant]
     Indication: LUNG DISORDER
     Dosage: 6 GRAM, ONCE A DAY
     Route: 042
  7. SULPIRIDE [Suspect]
     Active Substance: SULPIRIDE
     Indication: PSYCHOTIC DISORDER
     Dosage: UNK 2, ONCE A DAY
     Route: 048
     Dates: end: 20200331
  8. LYSANXIA [Concomitant]
     Active Substance: PRAZEPAM
     Indication: PRODUCT USED FOR UNKNOWN INDICATION
     Dosage: 10 MILLIGRAM, ONCE A DAY
     Route: 048
  9. VITAMINE PP AGUETTANT [Concomitant]
     Indication: PRODUCT USED FOR UNKNOWN INDICATION
     Dosage: UNK
     Route: 042

REACTIONS (4)
  - Intestinal obstruction [Recovering/Resolving]
  - Blood creatine phosphokinase increased [Recovered/Resolved]
  - Pyrexia [Recovered/Resolved]
  - Extrapyramidal disorder [Recovering/Resolving]

NARRATIVE: CASE EVENT DATE: 20200310
